FAERS Safety Report 5136988-3 (Version None)
Quarter: 2006Q4

REPORT INFORMATION
  Report Type: 
  Country: None (occurrence: None)
  Receive Date: 20061030
  Receipt Date: 20060925
  Transmission Date: 20070319
  Serious: Yes (Disabling, Other)
  Sender: FDA-Public Use
  Company Number: PHBS2006NL14813

PATIENT
  Age: 80 Year
  Sex: Male

DRUGS (3)
  1. AREDIA [Suspect]
     Indication: MULTIPLE MYELOMA
     Dosage: 90 MG/D
     Route: 042
  2. AREDIA [Suspect]
     Dosage: 60 MG/D
     Route: 042
  3. CAD [Concomitant]
     Dosage: UNK, BID
     Route: 065

REACTIONS (4)
  - DEAFNESS [None]
  - DRUG TOXICITY [None]
  - DYSPHONIA [None]
  - TINNITUS [None]
